FAERS Safety Report 7254757-5 (Version None)
Quarter: 2011Q1

REPORT INFORMATION
  Report Type: 
  Country: None (occurrence: None)
  Receive Date: 20110129
  Receipt Date: 20100318
  Transmission Date: 20110831
  Serious: No
  Sender: FDA-Public Use
  Company Number: US-ABBOTT-10P-163-0634138-00

PATIENT
  Sex: Female
  Weight: 77.18 kg

DRUGS (5)
  1. ORTHO EVRA [Concomitant]
     Indication: CONTRACEPTION
     Dosage: TOPICAL PATCH
     Route: 061
  2. HUMIRA [Suspect]
     Indication: CROHN'S DISEASE
     Route: 058
     Dates: start: 20100301
  3. HUMIRA [Suspect]
     Route: 058
     Dates: end: 20100301
  4. LEVOTHYROXINE SODIUM [Concomitant]
     Indication: THYROIDECTOMY
     Route: 048
     Dates: start: 20070101
  5. LEVOTHYROXINE SODIUM [Concomitant]
     Indication: THYROID HORMONE REPLACEMENT THERAPY

REACTIONS (4)
  - MIDDLE EAR EFFUSION [None]
  - DRUG DOSE OMISSION [None]
  - RESPIRATORY TRACT INFECTION BACTERIAL [None]
  - COUGH [None]
